FAERS Safety Report 4706648-9 (Version None)
Quarter: 2005Q3

REPORT INFORMATION
  Report Type: 
  Country: None (occurrence: None)
  Receive Date: 20050705
  Receipt Date: 20050629
  Transmission Date: 20060218
  Serious: Yes (Hospitalization)
  Sender: FDA-Public Use
  Company Number: US-BRISTOL-MYERS SQUIBB COMPANY-13019146

PATIENT
  Age: 62 Year
  Sex: Male
  Weight: 78 kg

DRUGS (10)
  1. CETUXIMAB [Suspect]
     Indication: COLON CANCER STAGE III
     Dosage: TOTAL DOSE ADMINISTERED THIS COURSE = 960 MG.
     Route: 042
     Dates: start: 20050613, end: 20050613
  2. FLUOROURACIL [Suspect]
     Indication: COLON CANCER STAGE III
     Dosage: 400 MG/M2 IV PUSH ON DAY 1 F/B 2400 MG/M2 CIV OVER 46-48 HRS.  TOTAL DOSE ADMINISTERED = 5376 MG.
     Route: 042
     Dates: start: 20050608, end: 20050608
  3. LEUCOVORIN CALCIUM [Suspect]
     Indication: COLON CANCER STAGE III
     Dosage: TOTAL DOSE ADMINISTERED THIS COURSE = 768 MG.
     Route: 042
     Dates: start: 20050606, end: 20050606
  4. OXALIPLATIN [Suspect]
     Indication: COLON CANCER STAGE III
     Dosage: TOTAL DOSE ADMINISTERED THIS COURSE = 163 MG.
     Route: 042
     Dates: start: 20050606, end: 20050606
  5. ALOXI [Concomitant]
  6. BENADRYL [Concomitant]
  7. DECADRON [Concomitant]
  8. KYTRIL [Concomitant]
  9. NORVASC [Concomitant]
  10. ZOCOR [Concomitant]

REACTIONS (5)
  - DEHYDRATION [None]
  - FATIGUE [None]
  - HYPOTENSION [None]
  - PYREXIA [None]
  - STAPHYLOCOCCAL SEPSIS [None]
